FAERS Safety Report 25888014 (Version 2)
Quarter: 2025Q4

REPORT INFORMATION
  Report Type: Spontaneous
  Country: US (occurrence: US)
  Receive Date: 20251007
  Receipt Date: 20251027
  Transmission Date: 20260117
  Serious: Yes (Other)
  Sender: TEVA
  Company Number: US-TEVA-VS-3378390

PATIENT
  Age: 50 Year
  Sex: Male

DRUGS (8)
  1. PREDNISONE [Suspect]
     Active Substance: PREDNISONE
     Indication: Toxocariasis
     Route: 065
  2. DUPILUMAB [Suspect]
     Active Substance: DUPILUMAB
     Indication: Hypereosinophilic syndrome
     Route: 065
  3. ALBENDAZOLE [Suspect]
     Active Substance: ALBENDAZOLE
     Indication: Toxocariasis
     Route: 065
  4. ASPIRIN [Suspect]
     Active Substance: ASPIRIN
     Indication: Product used for unknown indication
     Route: 048
  5. BUDESONIDE [Suspect]
     Active Substance: BUDESONIDE
     Indication: Hypereosinophilic syndrome
     Dosage: NASAL IRRIGATION
     Route: 045
  6. MONTELUKAST [Suspect]
     Active Substance: MONTELUKAST
     Indication: Hypereosinophilic syndrome
     Route: 065
  7. MEPOLIZUMAB [Suspect]
     Active Substance: MEPOLIZUMAB
     Indication: Hypereosinophilic syndrome
     Route: 065
  8. FORMOTEROL\MOMETASONE [Suspect]
     Active Substance: FORMOTEROL\MOMETASONE
     Indication: Hypereosinophilic syndrome
     Route: 065

REACTIONS (4)
  - Psoriasis [Recovering/Resolving]
  - Treatment failure [Unknown]
  - NSAID exacerbated respiratory disease [Recovering/Resolving]
  - Drug ineffective [Unknown]
